FAERS Safety Report 4500623-5 (Version None)
Quarter: 2004Q4

REPORT INFORMATION
  Report Type: 
  Country: None (occurrence: None)
  Receive Date: 20041110
  Receipt Date: 20041025
  Transmission Date: 20050328
  Serious: Yes (Hospitalization)
  Sender: FDA-Public Use
  Company Number: 206823

PATIENT
  Age: 49 Year
  Sex: Female

DRUGS (2)
  1. AVONEX [Suspect]
     Indication: MULTIPLE SCLEROSIS
     Dates: start: 20030901, end: 20040301
  2. AVONOX ^BIOGEN^ [Suspect]
     Indication: MULTIPLE SCLEROSIS
     Dates: start: 20040301

REACTIONS (6)
  - DEHYDRATION [None]
  - KIDNEY INFECTION [None]
  - NAUSEA [None]
  - THERAPY NON-RESPONDER [None]
  - URINARY INCONTINENCE [None]
  - VOMITING [None]
